FAERS Safety Report 4681746-7 (Version None)
Quarter: 2005Q2

REPORT INFORMATION
  Report Type: 
  Country: None (occurrence: None)
  Receive Date: 20050602
  Receipt Date: 20050518
  Transmission Date: 20051028
  Serious: Yes (Other)
  Sender: FDA-Public Use
  Company Number: 2005BI008922

PATIENT
  Age: 55 Year
  Sex: Female
  Weight: 90.7194 kg

DRUGS (4)
  1. NATALIZUMAB [Suspect]
     Indication: MULTIPLE SCLEROSIS
     Dosage: 300 MG, QM; IV
     Route: 042
     Dates: start: 20050216, end: 20050216
  2. SYNTHROID [Concomitant]
  3. LIPITOR [Concomitant]
  4. PROVIGIL [Concomitant]

REACTIONS (4)
  - ATRIAL FLUTTER [None]
  - CHEST WALL PAIN [None]
  - COUGH [None]
  - DYSPHONIA [None]
